FAERS Safety Report 8595677 (Version 3)
Quarter: 2012Q4

REPORT INFORMATION
  Report Type: 
  Country: SE (occurrence: SE)
  Receive Date: 20120604
  Receipt Date: 20121029
  Transmission Date: 20130627
  Serious: Yes (Other)
  Sender: FDA-Public Use
  Company Number: PHHY2012SE046202

PATIENT
  Sex: Female

DRUGS (1)
  1. SIMVASTATIN SANDOZ [Suspect]
     Route: 048
     Dates: end: 20120403

REACTIONS (3)
  - Rhabdomyolysis [Unknown]
  - Myalgia [Unknown]
  - Toxicity to various agents [Unknown]
